FAERS Safety Report 9160344 (Version 1)
Quarter: 2013Q1

REPORT INFORMATION
  Report Type: Spontaneous
  Country: GB (occurrence: None)
  Receive Date: 20130220
  Receipt Date: 20130220
  Transmission Date: 20140127
  Serious: Yes (Hospitalization)
  Sender: FDA-Public Use
  Company Number: AUR-APL-2013-01357

PATIENT
  Age: 31 Year
  Sex: Female
  Weight: 100 kg

DRUGS (6)
  1. CEFALEXIN (CEFALEXIN) [Suspect]
     Indication: AXILLARY MASS
     Route: 048
     Dates: start: 20130116, end: 20130119
  2. AUGMENTIN (AUGMENTIN) [Concomitant]
  3. DICLOFENAC (DICLOFENAC) [Concomitant]
  4. ENOXAPARIN (ENOXAPARIN) [Concomitant]
  5. LEVOTHYROXINE (LEVOTHYROXINE) [Concomitant]
  6. PARACETAMOL (PARACETAMOL) [Concomitant]

REACTIONS (10)
  - Drug hypersensitivity [None]
  - Rash [None]
  - Erythema [None]
  - Pruritus generalised [None]
  - Periorbital oedema [None]
  - Rash [None]
  - Eyelid oedema [None]
  - Pruritus [None]
  - Wound decomposition [None]
  - Skin disorder [None]
